FAERS Safety Report 8408353-4 (Version None)
Quarter: 2012Q2

REPORT INFORMATION
  Report Type: 
  Country: None (occurrence: None)
  Receive Date: 20120531
  Receipt Date: 20120531
  Transmission Date: 20120825
  Serious: Yes (Other)
  Sender: FDA-Public Use
  Company Number: None

PATIENT
  Sex: Female
  Weight: 63.5036 kg

DRUGS (1)
  1. TROPICAMIDE [Suspect]
     Indication: OPHTHALMOLOGICAL EXAMINATION
     Dosage: SEVERAL DROPS EACH EYE ONCE EYES
     Dates: start: 20120217

REACTIONS (7)
  - SKIN DISORDER [None]
  - ERYTHEMA [None]
  - EYE SWELLING [None]
  - OCULAR HYPERAEMIA [None]
  - SKIN WRINKLING [None]
  - EYE PRURITUS [None]
  - EYE IRRITATION [None]
